FAERS Safety Report 8421228-X (Version None)
Quarter: 2012Q2

REPORT INFORMATION
  Report Type: 
  Country: None (occurrence: None)
  Receive Date: 20120323
  Receipt Date: 20110921
  Transmission Date: 20120825
  Serious: Yes (Hospitalization)
  Sender: FDA-Public Use
  Company Number: 163-21880-11071894

PATIENT
  Age: 74 Year
  Sex: Female
  Weight: 50.3493 kg

DRUGS (16)
  1. ZIAC [Concomitant]
  2. FERROUS SULFATE TAB [Concomitant]
  3. CALCIUM CARBONATE [Concomitant]
  4. CALCIUM CARBONATE [Concomitant]
  5. PRAVACHOL [Concomitant]
  6. BENICAR [Concomitant]
  7. SYNTHROID [Concomitant]
  8. NORCO [Concomitant]
  9. REVLIMID [Suspect]
     Indication: MULTIPLE MYELOMA
     Dosage: 25 MG, 1 IN 1 D, PO
     Route: 048
     Dates: start: 20110617, end: 20110718
  10. TIAC (ALL OTHER THERAPEUTIC PRODUCTS) [Concomitant]
  11. TUSSIONEX (TUSSIONEX ^PENNWALT^) [Concomitant]
  12. FISH OIL (FISH OIL) [Concomitant]
  13. COMPAZINE [Concomitant]
  14. IRON (IRON) [Concomitant]
  15. PREMARIN [Concomitant]
  16. LOVAZA [Concomitant]

REACTIONS (7)
  - PRURITUS [None]
  - ASTHENIA [None]
  - PANCYTOPENIA [None]
  - DRUG HYPERSENSITIVITY [None]
  - URTICARIA [None]
  - RASH ERYTHEMATOUS [None]
  - VIRAL INFECTION [None]
